FAERS Safety Report 26197018 (Version 1)
Quarter: 2025Q4

REPORT INFORMATION
  Report Type: Spontaneous
  Country: EU (occurrence: EU)
  Receive Date: 20251224
  Receipt Date: 20251224
  Transmission Date: 20260117
  Serious: Yes (Death, Life-Threatening, Other)
  Sender: SANDOZ
  Company Number: EU-002147023-PHHY2019FR012547

PATIENT
  Age: 33 Year
  Sex: Female
  Weight: 48 kg

DRUGS (19)
  1. PIPERACILLIN SODIUM\TAZOBACTAM SODIUM [Suspect]
     Active Substance: PIPERACILLIN SODIUM\TAZOBACTAM SODIUM
     Indication: Sepsis
     Dosage: 1 DOSAGE FORM, TID; CONCENTRATION:  4G/500 MG
     Dates: start: 20181201, end: 20181212
  2. PIPERACILLIN SODIUM\TAZOBACTAM SODIUM [Suspect]
     Active Substance: PIPERACILLIN SODIUM\TAZOBACTAM SODIUM
     Indication: Febrile neutropenia
     Dosage: UNK
  3. CYCLOSPORINE [Suspect]
     Active Substance: CYCLOSPORINE
     Indication: Prophylaxis against graft versus host disease
     Dosage: 150 MG, QD
     Dates: start: 20181205, end: 20181209
  4. CYCLOSPORINE [Suspect]
     Active Substance: CYCLOSPORINE
     Indication: Prophylaxis against graft versus host disease
     Dosage: 150 MILLIGRAM, QD
     Dates: start: 20181205, end: 20181209
  5. ALPRAZOLAM [Suspect]
     Active Substance: ALPRAZOLAM
     Indication: Anxiety
     Dosage: UNK
     Dates: start: 20181211, end: 20181211
  6. ZOVIRAX [Suspect]
     Active Substance: ACYCLOVIR
     Indication: Antiviral prophylaxis
     Dosage: 250 MILLIGRAM, TID
     Dates: start: 20181201, end: 20181210
  7. CELLCEPT [Suspect]
     Active Substance: MYCOPHENOLATE MOFETIL
     Indication: Prophylaxis against graft versus host disease
     Dosage: 750 MILLIGRAM, TID
     Dates: start: 20181205, end: 20181212
  8. AMIKACIN [Suspect]
     Active Substance: AMIKACIN
     Indication: Pseudomonas infection
     Dosage: 1200 MG, QD
     Dates: start: 20181206, end: 20181209
  9. VFEND [Suspect]
     Active Substance: VORICONAZOLE
     Indication: Antifungal prophylaxis
     Dosage: 250 MILLIGRAM, BID
     Dates: start: 20181201, end: 20181209
  10. PRIMPERAN [Suspect]
     Active Substance: METOCLOPRAMIDE HYDROCHLORIDE
     Indication: Prophylaxis of nausea and vomiting
     Dosage: 30 MG, QD (10 MG/2 ML, SOLUTION FOR INJECTION IN AMPOULE)
     Dates: start: 20181123, end: 20181212
  11. PRIMPERAN [Suspect]
     Active Substance: METOCLOPRAMIDE HYDROCHLORIDE
     Indication: Prophylaxis of nausea and vomiting
     Dosage: 30 MILLIGRAM, QD; CONCENTRATION: 10 MG/2  ML; FORMULATION: INJECTABLE SOLUTION IN  AMPOULE
     Dates: start: 20181123, end: 20181212
  12. CYCLOPHOSPHAMIDE [Suspect]
     Active Substance: CYCLOPHOSPHAMIDE
     Indication: Stem cell transplant
     Dosage: 2400 MG, QD
     Dates: start: 20181203, end: 20181204
  13. LETERMOVIR [Suspect]
     Active Substance: LETERMOVIR
     Indication: Antiviral prophylaxis
     Dosage: 240 MG, QD
     Dates: start: 20181206, end: 20181213
  14. ACUPAN [Suspect]
     Active Substance: NEFOPAM HYDROCHLORIDE
     Indication: Stomatitis
     Dosage: 20 MILLIGRAM, QID
     Dates: start: 20181201, end: 20181212
  15. CANCIDAS [Suspect]
     Active Substance: CASPOFUNGIN ACETATE
     Indication: Antifungal prophylaxis
     Dosage: 50 MG, QD
     Dates: start: 20181210, end: 20181213
  16. TRAMADOL HYDROCHLORIDE [Suspect]
     Active Substance: TRAMADOL HYDROCHLORIDE
     Indication: Stomatitis
     Dosage: 100 MILLIGRAM, TID
     Dates: start: 20181204, end: 20181212
  17. TRAMADOL HYDROCHLORIDE [Suspect]
     Active Substance: TRAMADOL HYDROCHLORIDE
     Indication: Stomatitis
     Dosage: 300 MG, QD (100 MG/2 ML, SOLUTION FOR INJECTION IN AMPOULE)
     Dates: start: 20181204, end: 20181212
  18. ALPRAZOLAM [Suspect]
     Active Substance: ALPRAZOLAM
     Indication: Anxiety
     Dosage: 0.25 MG, 1 TOTAL
     Dates: start: 20181211, end: 20181211
  19. ALPRAZOLAM [Suspect]
     Active Substance: ALPRAZOLAM
     Indication: Anxiety
     Dosage: UNK, ONCE
     Dates: start: 20181211, end: 20181211

REACTIONS (13)
  - Coma [Fatal]
  - Encephalopathy [Fatal]
  - Cytokine release syndrome [Fatal]
  - Blood bilirubin abnormal [Unknown]
  - Acute kidney injury [Not Recovered/Not Resolved]
  - Acute kidney injury [Not Recovered/Not Resolved]
  - Aspartate aminotransferase abnormal [Unknown]
  - Status epilepticus [Unknown]
  - Alanine aminotransferase abnormal [Unknown]
  - Cardiac failure [Not Recovered/Not Resolved]
  - Enterocolitis [Not Recovered/Not Resolved]
  - Blood potassium abnormal [Unknown]
  - Blood alkaline phosphatase abnormal [Unknown]
